FAERS Safety Report 7187529-0 (Version None)
Quarter: 2010Q4

REPORT INFORMATION
  Report Type: 
  Country: None (occurrence: None)
  Receive Date: 20101222
  Receipt Date: 20100629
  Transmission Date: 20110411
  Serious: No
  Sender: FDA-Public Use
  Company Number: US-AMGEN-KDL421313

PATIENT

DRUGS (13)
  1. ENBREL [Suspect]
     Indication: PRODUCT USED FOR UNKNOWN INDICATION
     Dosage: 50 MG, QWK
     Route: 058
  2. HYDROXYCHLOROQUINE SULFATE [Concomitant]
     Dosage: 200 MG, UNK
  3. CELECOXIB [Concomitant]
     Dosage: 100 MG, UNK
  4. MOMETASONE FUROATE MONOHYDRATE [Concomitant]
     Dosage: 50 A?G, UNK
  5. LEFLUNOMIDE [Concomitant]
     Dosage: 10 MG, UNK
  6. FEXOFENADINE HCL [Concomitant]
     Dosage: 30 MG, UNK
  7. VAGIFEM [Concomitant]
     Dosage: 10 A?G, UNK
  8. ALBUTEROL SULFATE [Concomitant]
     Dosage: 90 A?G, UNK
  9. FLUTICASONE/SALMETEROL [Concomitant]
  10. ROSUVASTATIN CALCIUM [Concomitant]
     Dosage: 10 MG, UNK
  11. CALCIUM [Concomitant]
     Dosage: UNK UNK, UNK
  12. FOLIC ACID [Concomitant]
     Dosage: 200 A?G, UNK
  13. ACETYLSALICYLIC ACID [Concomitant]
     Dosage: 81 MG, UNK

REACTIONS (4)
  - INJECTION SITE ERYTHEMA [None]
  - INJECTION SITE PRURITUS [None]
  - INJECTION SITE SWELLING [None]
  - INJECTION SITE URTICARIA [None]
